FAERS Safety Report 9056524 (Version 1)
Quarter: 2013Q1

REPORT INFORMATION
  Report Type: Spontaneous
  Country: MX (occurrence: MX)
  Receive Date: 20130204
  Receipt Date: 20130204
  Transmission Date: 20140127
  Serious: Yes (Death)
  Sender: FDA-Public Use
  Company Number: MX-GLAXOSMITHKLINE-A1010566A

PATIENT
  Age: 6 None
  Sex: Female
  Weight: 27.6 kg

DRUGS (2)
  1. SERETIDE [Suspect]
     Indication: ASTHMA
     Dosage: 2PUFF TWICE PER DAY
     Route: 055
     Dates: start: 200812, end: 20120605
  2. SINGULAIR [Concomitant]

REACTIONS (1)
  - Cardio-respiratory arrest [Fatal]
